FAERS Safety Report 14304983 (Version 1)
Quarter: 2017Q4

REPORT INFORMATION
  Report Type: Spontaneous
  Country: JP (occurrence: JP)
  Receive Date: 20171219
  Receipt Date: 20171219
  Transmission Date: 20180321
  Serious: Yes (Other)
  Sender: FDA-Public Use
  Company Number: JP-OTSUKA-JP-2012-15884

PATIENT
  Age: 32 Year
  Sex: Female

DRUGS (15)
  1. ABILIFY [Suspect]
     Active Substance: ARIPIPRAZOLE
     Dosage: 6 MG, QD
     Route: 048
     Dates: start: 20120609, end: 20120620
  2. ABILIFY [Suspect]
     Active Substance: ARIPIPRAZOLE
     Indication: DELUSIONAL PERCEPTION
     Dosage: 21 MG, QD
     Route: 048
     Dates: start: 20100420, end: 20100422
  3. ABILIFY [Suspect]
     Active Substance: ARIPIPRAZOLE
     Dosage: 21 MG, QD
     Route: 048
     Dates: start: 20100911, end: 20101015
  4. ABILIFY [Suspect]
     Active Substance: ARIPIPRAZOLE
     Dosage: 3 MG, QD
     Route: 048
     Dates: start: 20120621
  5. LITIOMAL [Suspect]
     Active Substance: LITHIUM CARBONATE
     Indication: EUPHORIC MOOD
  6. LITIOMAL [Suspect]
     Active Substance: LITHIUM CARBONATE
     Indication: GRANDIOSITY
  7. ABILIFY [Suspect]
     Active Substance: ARIPIPRAZOLE
     Dosage: 15 MG, QD
     Route: 048
     Dates: start: 20101028, end: 20120608
  8. ABILIFY [Suspect]
     Active Substance: ARIPIPRAZOLE
     Dosage: 18 MG, QD
     Route: 048
     Dates: start: 20101016, end: 20101027
  9. LITIOMAL [Suspect]
     Active Substance: LITHIUM CARBONATE
     Indication: LOGORRHOEA
     Dosage: 100 MG, BID
     Route: 048
     Dates: start: 20100510, end: 20120608
  10. LITIOMAL [Suspect]
     Active Substance: LITHIUM CARBONATE
     Indication: IRRITABILITY
  11. TASMOLIN [Concomitant]
     Active Substance: BIPERIDEN
     Indication: TREMOR
     Dosage: 1 MG, BID
     Route: 048
     Dates: start: 20100625, end: 20120608
  12. ABILIFY [Suspect]
     Active Substance: ARIPIPRAZOLE
     Indication: AGGRESSION
     Dosage: 24 MG, QD
     Route: 048
     Dates: start: 20100402, end: 20100419
  13. ABILIFY [Suspect]
     Active Substance: ARIPIPRAZOLE
     Indication: DELUSION
     Dosage: 30 MG, QD
     Route: 048
     Dates: start: 20100312, end: 20100401
  14. ABILIFY [Suspect]
     Active Substance: ARIPIPRAZOLE
     Indication: HALLUCINATION
     Dosage: 24 MG, QD
     Route: 048
     Dates: start: 20100311, end: 20100311
  15. ABILIFY [Suspect]
     Active Substance: ARIPIPRAZOLE
     Indication: HALLUCINATION, AUDITORY
     Dosage: 24 MG, QD
     Route: 048
     Dates: start: 20100423, end: 20100910

REACTIONS (5)
  - Surgery [Unknown]
  - Abortion spontaneous [Recovered/Resolved]
  - Maternal exposure during pregnancy [Recovered/Resolved]
  - Parkinsonism [Recovering/Resolving]
  - Off label use [Unknown]

NARRATIVE: CASE EVENT DATE: 20100625
